FAERS Safety Report 9347208 (Version 1)
Quarter: 2013Q2

REPORT INFORMATION
  Report Type: Spontaneous
  Country: US (occurrence: US)
  Receive Date: 20130613
  Receipt Date: 20130613
  Transmission Date: 20140414
  Serious: Yes (Other)
  Sender: FDA-Public Use
  Company Number: US-ELI_LILLY_AND_COMPANY-US201306001733

PATIENT
  Sex: Female
  Weight: 65.76 kg

DRUGS (1)
  1. FORTEO [Suspect]
     Dosage: 20 UG, QD
     Route: 058

REACTIONS (2)
  - Hip fracture [Recovering/Resolving]
  - Back pain [Unknown]
